FAERS Safety Report 6829573-6 (Version None)
Quarter: 2010Q3

REPORT INFORMATION
  Report Type: 
  Country: None (occurrence: None)
  Receive Date: 20100709
  Receipt Date: 20070327
  Transmission Date: 20110219
  Serious: No
  Sender: FDA-Public Use
  Company Number: US-PFIZER INC-2007016924

PATIENT
  Sex: Female
  Weight: 52.2 kg

DRUGS (5)
  1. LYRICA [Suspect]
  2. VASOTEC [Concomitant]
  3. BENICAR [Concomitant]
  4. TOPROL-XL [Concomitant]
  5. MEVACOR [Concomitant]

REACTIONS (1)
  - DIARRHOEA [None]
